FAERS Safety Report 9645479 (Version 1)
Quarter: 2013Q4

REPORT INFORMATION
  Report Type: Spontaneous
  Country: US (occurrence: None)
  Receive Date: 20131023
  Receipt Date: 20131023
  Transmission Date: 20140711
  Serious: Yes (Hospitalization, Other)
  Sender: FDA-Public Use
  Company Number: AUR-APL-2013-08733

PATIENT
  Age: 66 Year
  Sex: Male

DRUGS (2)
  1. CLOPIDOGREL (CLOPIDOGREL) [Suspect]
     Indication: THROMBOSIS PROPHYLAXIS
     Dates: start: 2010
  2. ASPIRIN (ACETYLSALICYLIC ACID) [Suspect]
     Indication: THROMBOSIS PROPHYLAXIS
     Dates: start: 2010

REACTIONS (4)
  - Gastrointestinal haemorrhage [None]
  - Iron deficiency anaemia [None]
  - Angina unstable [None]
  - Atrial fibrillation [None]
